FAERS Safety Report 23542657 (Version 1)
Quarter: 2024Q1

REPORT INFORMATION
  Report Type: Spontaneous
  Country: US (occurrence: US)
  Receive Date: 20240220
  Receipt Date: 20240220
  Transmission Date: 20240409
  Serious: No
  Sender: FDA-Public Use
  Company Number: US-ALKEM LABORATORIES LIMITED-US-ALKEM-2023-02930

PATIENT
  Sex: Male
  Weight: 98.866 kg

DRUGS (1)
  1. TRIAMCINOLONE ACETONIDE [Suspect]
     Active Substance: TRIAMCINOLONE ACETONIDE
     Indication: Rash
     Dosage: UNK UNK, QD
     Route: 065

REACTIONS (3)
  - Hypoaesthesia [Unknown]
  - Hypoaesthesia oral [Unknown]
  - Paraesthesia [Unknown]
